FAERS Safety Report 8917792 (Version 1)
Quarter: 2012Q4

REPORT INFORMATION
  Report Type: 
  Country: US (occurrence: US)
  Receive Date: 20121120
  Receipt Date: 20121120
  Transmission Date: 20130627
  Serious: No
  Sender: FDA-Public Use
  Company Number: US-ASTRAZENECA-2008UW06869

PATIENT
  Age: 74 Year
  Sex: Female
  Weight: 68 kg

DRUGS (5)
  1. NEXIUM [Suspect]
     Indication: GASTROOESOPHAGEAL REFLUX DISEASE
     Route: 048
  2. ADVAIR [Concomitant]
  3. ZOCOR [Concomitant]
  4. BABY ASPIRIN [Concomitant]
  5. PLAVIX [Concomitant]

REACTIONS (5)
  - Tremor [Unknown]
  - Sinusitis [Unknown]
  - Abdominal discomfort [Unknown]
  - Malaise [Unknown]
  - Inappropriate schedule of drug administration [Unknown]
